FAERS Safety Report 4327920-0 (Version None)
Quarter: 2004Q1

REPORT INFORMATION
  Report Type: 
  Country: None (occurrence: None)
  Receive Date: 20040325
  Receipt Date: 20040312
  Transmission Date: 20041129
  Serious: Yes (Hospitalization)
  Sender: FDA-Public Use
  Company Number: 2004PK00503

PATIENT
  Age: 75 Year
  Sex: Female
  Weight: 85 kg

DRUGS (4)
  1. BELO-ZOC MITE [Suspect]
     Indication: HYPERTENSION
     Dosage: 47.5 MG DAILY PO
     Route: 048
     Dates: start: 20000201, end: 20031006
  2. DISALPIN [Suspect]
     Indication: HYPERTENSION
     Dosage: 1 DF QD PO
     Route: 048
     Dates: start: 20000201, end: 20031006
  3. VERAPAMIL [Suspect]
     Indication: ANGINA PECTORIS
     Dosage: 80 MG BID PO
     Route: 048
     Dates: end: 20031006
  4. MANINIL [Concomitant]

REACTIONS (8)
  - ARTERIOSCLEROSIS [None]
  - BLOOD PRESSURE SYSTOLIC INCREASED [None]
  - BRADYCARDIA [None]
  - CEREBROVASCULAR ACCIDENT [None]
  - CIRCULATORY COLLAPSE [None]
  - DIZZINESS [None]
  - DRUG INTERACTION [None]
  - SINOATRIAL BLOCK [None]
